FAERS Safety Report 7075814-2 (Version None)
Quarter: 2010Q4

REPORT INFORMATION
  Report Type: 
  Country: None (occurrence: None)
  Receive Date: 20101101
  Receipt Date: 20101021
  Transmission Date: 20110411
  Serious: No
  Sender: FDA-Public Use
  Company Number: US-BIOGENIDEC-2010BI024978

PATIENT
  Age: 48 Year
  Sex: Female

DRUGS (1)
  1. TYSABRI [Suspect]
     Indication: MULTIPLE SCLEROSIS
     Route: 042
     Dates: start: 20100318

REACTIONS (13)
  - ARTHRALGIA [None]
  - CONSTIPATION [None]
  - DYSURIA [None]
  - EYE PRURITUS [None]
  - FALL [None]
  - FATIGUE [None]
  - HAND FRACTURE [None]
  - HEADACHE [None]
  - IODINE ALLERGY [None]
  - MEMORY IMPAIRMENT [None]
  - POOR VENOUS ACCESS [None]
  - VISION BLURRED [None]
  - VISUAL IMPAIRMENT [None]
